FAERS Safety Report 10700582 (Version 2)
Quarter: 2015Q1

REPORT INFORMATION
  Report Type: Spontaneous
  Country: US (occurrence: US)
  Receive Date: 20150109
  Receipt Date: 20150223
  Transmission Date: 20150721
  Serious: Yes (Other)
  Sender: FDA-Public Use
  Company Number: US-PFIZER INC-2015004631

PATIENT
  Age: 67 Year
  Sex: Female
  Weight: 60.77 kg

DRUGS (4)
  1. TIMOLOL [Concomitant]
     Active Substance: TIMOLOL
     Dosage: UNK
  2. PILOCARPINE EYE DROP 4% [Concomitant]
     Dosage: UNK
  3. XALATAN [Suspect]
     Active Substance: LATANOPROST
     Indication: GLAUCOMA
     Dosage: 1 DROP IN EACH EYE AT NIGHT
     Dates: start: 1999
  4. XALATAN [Suspect]
     Active Substance: LATANOPROST
     Indication: VISUAL ACUITY REDUCED

REACTIONS (3)
  - Product packaging issue [Unknown]
  - Poor quality drug administered [Unknown]
  - Drug dependence [Unknown]
